FAERS Safety Report 11865944 (Version 1)
Quarter: 2015Q4

REPORT INFORMATION
  Report Type: Spontaneous
  Country: GB (occurrence: GB)
  Receive Date: 20151223
  Receipt Date: 20151223
  Transmission Date: 20160305
  Serious: Yes (Other)
  Sender: FDA-Public Use
  Company Number: GB-MYLANLABS-2015M1046835

PATIENT

DRUGS (2)
  1. OCTREOTIDE. [Suspect]
     Active Substance: OCTREOTIDE
     Indication: POSTURAL ORTHOSTATIC TACHYCARDIA SYNDROME
     Dosage: TITRATED TO 50MICROG, SIX TIMES DAILY (300 MICROG/24H);
     Route: 058
  2. OCTREOTIDE. [Suspect]
     Active Substance: OCTREOTIDE
     Dosage: TITRATED TO 50MICROG, SIX TIMES DAILY (300 MICROG/24H);
     Route: 058

REACTIONS (7)
  - Diarrhoea [Unknown]
  - Vaginal haemorrhage [Unknown]
  - Acne [Recovered/Resolved]
  - Nausea [Unknown]
  - Alopecia [Recovering/Resolving]
  - Bladder dysfunction [Unknown]
  - Dysmenorrhoea [Recovered/Resolved]
